FAERS Safety Report 14814946 (Version 2)
Quarter: 2018Q2

REPORT INFORMATION
  Report Type: Spontaneous
  Country: PE (occurrence: PE)
  Receive Date: 20180426
  Receipt Date: 20180509
  Transmission Date: 20180711
  Serious: Yes (Death, Other)
  Sender: FDA-Public Use
  Company Number: PE-MYLANLABS-2018M1026294

PATIENT
  Age: 39 Year
  Sex: Female

DRUGS (3)
  1. EFAVIRENZ. [Concomitant]
     Active Substance: EFAVIRENZ
     Indication: HIV INFECTION
  2. DIDANOSINE. [Suspect]
     Active Substance: DIDANOSINE
     Indication: HIV INFECTION
     Route: 065
  3. LAMIVUDINE. [Concomitant]
     Active Substance: LAMIVUDINE
     Indication: HIV INFECTION

REACTIONS (4)
  - Non-cirrhotic portal hypertension [Fatal]
  - Normocytic anaemia [Fatal]
  - Ascites [Fatal]
  - Upper gastrointestinal haemorrhage [Fatal]
